FAERS Safety Report 11522877 (Version 1)
Quarter: 2015Q3

REPORT INFORMATION
  Report Type: Spontaneous
  Country: US (occurrence: US)
  Receive Date: 20150918
  Receipt Date: 20150918
  Transmission Date: 20151125
  Serious: No
  Sender: FDA-Public Use
  Company Number: US-ACTELION PHARMACEUTICALS US, INC.-A-US2015-124075

PATIENT
  Age: 69 Year
  Sex: Female

DRUGS (7)
  1. OPSUMIT [Suspect]
     Active Substance: MACITENTAN
     Indication: PULMONARY HYPERTENSION
     Dosage: 10 MG, QD
     Route: 048
     Dates: start: 20150114
  2. AMITIZA [Concomitant]
     Active Substance: LUBIPROSTONE
  3. LINZESS [Concomitant]
     Active Substance: LINACLOTIDE
  4. SYNTHROID [Concomitant]
     Active Substance: LEVOTHYROXINE SODIUM
  5. COLACE [Concomitant]
     Active Substance: DOCUSATE SODIUM
  6. VALIUM [Concomitant]
     Active Substance: DIAZEPAM
  7. IRON [Concomitant]
     Active Substance: IRON

REACTIONS (1)
  - Dysgeusia [Not Recovered/Not Resolved]

NARRATIVE: CASE EVENT DATE: 20150907
